FAERS Safety Report 7274385-5 (Version None)
Quarter: 2011Q1

REPORT INFORMATION
  Report Type: 
  Country: None (occurrence: None)
  Receive Date: 20110204
  Receipt Date: 20110126
  Transmission Date: 20110831
  Serious: Yes (Life-Threatening, Hospitalization)
  Sender: FDA-Public Use
  Company Number: JP-JNJFOC-20090809393

PATIENT
  Sex: Female
  Weight: 65 kg

DRUGS (9)
  1. DOXIL [Suspect]
     Indication: OVARIAN CANCER RECURRENT
     Dosage: CYCLE 2
     Route: 042
  2. TERRANAS [Concomitant]
     Route: 048
  3. VITANEURIN [Concomitant]
     Indication: PROPHYLAXIS
     Route: 048
  4. ZOFRAN [Concomitant]
     Indication: NAUSEA
     Route: 042
  5. MAGMITT [Concomitant]
     Indication: PROPHYLAXIS
     Route: 048
  6. BIOFERMIN [Concomitant]
     Route: 048
  7. DOXIL [Suspect]
     Dosage: CYCLE 1
     Route: 042
  8. PYDOXAL [Concomitant]
     Indication: PROPHYLAXIS
     Route: 048
  9. BETAMETHASONE [Concomitant]
     Indication: PROPHYLAXIS
     Route: 048

REACTIONS (4)
  - WHITE BLOOD CELL COUNT DECREASED [None]
  - PNEUMONIA [None]
  - MALAISE [None]
  - PLATELET COUNT DECREASED [None]
